FAERS Safety Report 5440981-0 (Version None)
Quarter: 2007Q3

REPORT INFORMATION
  Report Type: 
  Country: None (occurrence: None)
  Receive Date: 20070831
  Receipt Date: 20070718
  Transmission Date: 20080115
  Serious: Yes (Other)
  Sender: FDA-Public Use
  Company Number: BR-PFIZER INC-2007027471

PATIENT
  Age: 74 Year
  Sex: Male

DRUGS (1)
  1. VIAGRA [Suspect]
     Route: 048

REACTIONS (7)
  - BLADDER PAIN [None]
  - BLOOD GLUCOSE FLUCTUATION [None]
  - DRUG INEFFECTIVE [None]
  - EJACULATION FAILURE [None]
  - INTENTIONAL DRUG MISUSE [None]
  - PROSTATIC DISORDER [None]
  - URINARY RETENTION [None]
